FAERS Safety Report 17884162 (Version 1)
Quarter: 2020Q2

REPORT INFORMATION
  Report Type: Spontaneous
  Country: US (occurrence: US)
  Receive Date: 20200611
  Receipt Date: 20200611
  Transmission Date: 20200714
  Serious: No
  Sender: FDA-Public Use
  Company Number: None

PATIENT
  Age: 56 Year
  Sex: Male
  Weight: 77.4 kg

DRUGS (24)
  1. CHLORELLA [Concomitant]
     Active Substance: DIETARY SUPPLEMENT
  2. GARCINIA [Concomitant]
     Active Substance: DIETARY SUPPLEMENT
  3. CAL CIUM PYRUVATE [Concomitant]
  4. SARSAPARILLA. [Concomitant]
     Active Substance: SARSAPARILLA
  5. CORDYCEPS [Concomitant]
     Active Substance: HERBALS
  6. COLLAGEN [Concomitant]
     Active Substance: COLLAGEN
  7. TRIBIBULUS [Concomitant]
  8. WILD GREEN OAT [Concomitant]
  9. NEURONTIN [Suspect]
     Active Substance: GABAPENTIN
     Indication: HYPOAESTHESIA
     Dosage: ?          QUANTITY:1 CAPSULE(S);?
     Route: 048
     Dates: start: 20200610, end: 20200610
  10. MACA [Concomitant]
  11. JIAOGULAN [Concomitant]
  12. OREGANO. [Concomitant]
     Active Substance: OREGANO
  13. WILD YAM [Concomitant]
  14. VITAMIN D3 [Concomitant]
     Active Substance: CHOLECALCIFEROL
  15. D-RIBOSE [Concomitant]
     Active Substance: DIETARY SUPPLEMENT
  16. KRILL OIL [Concomitant]
     Active Substance: DIETARY SUPPLEMENT\KRILL OIL
  17. MAGNESIUM [Concomitant]
     Active Substance: MAGNESIUM
  18. FISH  OIL [Concomitant]
     Active Substance: FISH OIL
  19. L-CITRULLINE [Concomitant]
     Active Substance: CITRULLINE
  20. BETA-ALANINE [Concomitant]
     Active Substance: DIETARY SUPPLEMENT
  21. VITAMIN D2 [Concomitant]
     Active Substance: ERGOCALCIFEROL
  22. CHROMIUM [Concomitant]
     Active Substance: CHROMIC CHLORIDE\CHROMIUM
  23. CIO2 [Concomitant]
  24. BLACK SEED CUMIN OIL [Concomitant]

REACTIONS (7)
  - Manufacturing materials issue [None]
  - Reaction to excipient [None]
  - Product prescribing issue [None]
  - Food allergy [None]
  - Skin lesion [None]
  - Symptom recurrence [None]
  - Body mass index increased [None]

NARRATIVE: CASE EVENT DATE: 20200610
